FAERS Safety Report 25233065 (Version 1)
Quarter: 2025Q2

REPORT INFORMATION
  Report Type: Spontaneous
  Country: US (occurrence: US)
  Receive Date: 20250424
  Receipt Date: 20250424
  Transmission Date: 20250717
  Serious: Yes (Hospitalization)
  Sender: SYMOGEN
  Company Number: US-PARTNER THERAPEUTICS-2025PTX00038

PATIENT
  Sex: Male

DRUGS (6)
  1. LEUKINE [Suspect]
     Active Substance: SARGRAMOSTIM
     Indication: Neuroblastoma
  2. CYCLOPHOSPHAMIDE [Concomitant]
     Active Substance: CYCLOPHOSPHAMIDE
  3. CARBOPLATIN [Concomitant]
     Active Substance: CARBOPLATIN
  4. VINCRISTINE [Concomitant]
     Active Substance: VINCRISTINE
  5. ETOPOSIDE [Concomitant]
     Active Substance: ETOPOSIDE
  6. DACTINOMYCIN [Concomitant]
     Active Substance: DACTINOMYCIN

REACTIONS (2)
  - Neuroblastoma recurrent [Unknown]
  - Off label use [Unknown]
